FAERS Safety Report 5306431-X (Version None)
Quarter: 2007Q2

REPORT INFORMATION
  Report Type: 
  Country: None (occurrence: None)
  Receive Date: 20070419
  Receipt Date: 20070410
  Transmission Date: 20071010
  Serious: Yes (Hospitalization, Disabling, Other)
  Sender: FDA-Public Use
  Company Number: 07H-167-0312415-00

PATIENT
  Age: 50 Year
  Sex: Female
  Weight: 51 kg

DRUGS (2)
  1. DOPAMINE HCL [Suspect]
     Indication: PERIARTHRITIS
     Dosage: INTRAMUSCULAR
     Route: 030
     Dates: start: 20060101
  2. HYDROCORTISONE [Suspect]
     Indication: PERIARTHRITIS
     Dosage: INTRAMUSCULAR
     Route: 030
     Dates: start: 20060101

REACTIONS (2)
  - CHRONIC FATIGUE SYNDROME [None]
  - POST VIRAL FATIGUE SYNDROME [None]
